FAERS Safety Report 8472903-2 (Version None)
Quarter: 2012Q2

REPORT INFORMATION
  Report Type: 
  Country: None (occurrence: None)
  Receive Date: 20120622
  Receipt Date: 20120622
  Transmission Date: 20120825
  Serious: No
  Sender: FDA-Public Use
  Company Number: None

PATIENT
  Age: 48 Year
  Sex: Female
  Weight: 63.5036 kg

DRUGS (1)
  1. DOXYCYCLINE [Suspect]
     Indication: PERIODONTAL DISEASE
     Dosage: 1 PER DAY PO
     Route: 048
     Dates: start: 20120616, end: 20120619

REACTIONS (2)
  - RASH [None]
  - NAUSEA [None]
